FAERS Safety Report 10205713 (Version 2)
Quarter: 2014Q2

REPORT INFORMATION
  Report Type: Spontaneous
  Country: US (occurrence: US)
  Receive Date: 20140530
  Receipt Date: 20140620
  Transmission Date: 20141212
  Serious: Yes (Other)
  Sender: FDA-Public Use
  Company Number: US-AMGEN-USASP2014039705

PATIENT
  Age: 53 Year
  Sex: Female
  Weight: 119.2 kg

DRUGS (2)
  1. ENBREL [Suspect]
     Indication: RHEUMATOID ARTHRITIS
     Dosage: 50 MG, QWK
     Route: 058
     Dates: start: 201312
  2. MTX                                /00113801/ [Concomitant]
     Dosage: 20 MG, QWK

REACTIONS (4)
  - Pharyngitis bacterial [Recovered/Resolved]
  - Arthritis infective [Unknown]
  - Ear pain [Recovered/Resolved]
  - Pharyngitis streptococcal [Unknown]
